FAERS Safety Report 18772904 (Version 1)
Quarter: 2021Q1

REPORT INFORMATION
  Report Type: Spontaneous
  Country: US (occurrence: US)
  Receive Date: 20210121
  Receipt Date: 20210121
  Transmission Date: 20210419
  Serious: Yes (Hospitalization)
  Sender: FDA-Public Use
  Company Number: None

PATIENT
  Age: 64 Year
  Sex: Female

DRUGS (9)
  1. LISINOPRIL 10MG [Concomitant]
     Active Substance: LISINOPRIL
     Dates: start: 20210115
  2. GLATIRAMER [Suspect]
     Active Substance: GLATIRAMER
     Indication: MULTIPLE SCLEROSIS
     Dosage: ?          OTHER FREQUENCY:3 TIMES A WEEK;?
     Route: 058
     Dates: start: 20200714, end: 20210118
  3. HYDROCHOLOTHIAZIDE 50MG [Concomitant]
     Dates: start: 20200509
  4. MELOXICAM 15MG [Concomitant]
     Active Substance: MELOXICAM
     Dates: start: 20190823
  5. AMLODIPINE [Concomitant]
     Active Substance: AMLODIPINE BESYLATE
     Dates: start: 20200624
  6. MONTELUKAST [Concomitant]
     Active Substance: MONTELUKAST SODIUM
     Dates: start: 20200808
  7. ACCU?CHECK SMARTVIEW TEST STRIPS [Concomitant]
     Dates: start: 20190522
  8. ESCITALOPRAM 10MG [Concomitant]
     Active Substance: ESCITALOPRAM OXALATE
     Dates: start: 20200521
  9. ROSUVASTATIN 20MG [Concomitant]
     Active Substance: ROSUVASTATIN
     Dates: start: 20200309

REACTIONS (2)
  - Haematochezia [None]
  - Gastrointestinal haemorrhage [None]

NARRATIVE: CASE EVENT DATE: 20210118
